FAERS Safety Report 5087020-1 (Version None)
Quarter: 2006Q3

REPORT INFORMATION
  Report Type: 
  Country: None (occurrence: None)
  Receive Date: 20060818
  Receipt Date: 20060805
  Transmission Date: 20061208
  Serious: Yes (Other)
  Sender: FDA-Public Use
  Company Number: 2006055498

PATIENT
  Sex: 0

DRUGS (2)
  1. FLAGYL [Suspect]
     Indication: COLITIS ULCERATIVE
     Dosage: SEE IMAGE
     Route: 048
     Dates: end: 20051001
  2. FLAGYL [Suspect]
     Indication: INFLAMMATORY BOWEL DISEASE
     Dosage: SEE IMAGE
     Route: 048
     Dates: end: 20051001

REACTIONS (2)
  - COLECTOMY [None]
  - DYSGEUSIA [None]
